FAERS Safety Report 9437289 (Version 1)
Quarter: 2013Q3

REPORT INFORMATION
  Report Type: Spontaneous
  Country: FR (occurrence: FR)
  Receive Date: 20130802
  Receipt Date: 20130802
  Transmission Date: 20140515
  Serious: Yes (Death, Other)
  Sender: FDA-Public Use
  Company Number: PHHY2013FR082678

PATIENT
  Sex: Female

DRUGS (2)
  1. AFINITOR [Suspect]
     Indication: BREAST CANCER
  2. AVASTIN [Concomitant]

REACTIONS (4)
  - Death [Fatal]
  - Respiratory disorder [Unknown]
  - Septic shock [Unknown]
  - Cardiac failure [Unknown]
